FAERS Safety Report 11206645 (Version 1)
Quarter: 2015Q2

REPORT INFORMATION
  Report Type: Spontaneous
  Country: US (occurrence: US)
  Receive Date: 20150622
  Receipt Date: 20150622
  Transmission Date: 20150821
  Serious: No
  Sender: FDA-Public Use
  Company Number: US-ABBVIE-15P-163-1397449-00

PATIENT
  Sex: Male

DRUGS (1)
  1. VIEKIRA PAK [Suspect]
     Active Substance: DASABUVIR\OMBITASVIR\PARITAPREVIR\RITONAVIR
     Indication: HEPATITIS C
     Route: 048

REACTIONS (7)
  - Tachycardia [Unknown]
  - Abdominal pain [Unknown]
  - Muscular weakness [Unknown]
  - Fatigue [Unknown]
  - Abdominal distension [Unknown]
  - Peripheral swelling [Unknown]
  - Hiccups [Unknown]

NARRATIVE: CASE EVENT DATE: 2015
